FAERS Safety Report 8358426-X (Version None)
Quarter: 2012Q2

REPORT INFORMATION
  Report Type: 
  Country: None (occurrence: None)
  Receive Date: 20120514
  Receipt Date: 20110802
  Transmission Date: 20120825
  Serious: No
  Sender: FDA-Public Use
  Company Number: US-TEVA-2011004060

PATIENT
  Sex: Female

DRUGS (1)
  1. NUVIGIL [Suspect]
     Route: 048

REACTIONS (5)
  - NAUSEA [None]
  - HEADACHE [None]
  - ABDOMINAL DISCOMFORT [None]
  - SOMNOLENCE [None]
  - HYPERHIDROSIS [None]
